FAERS Safety Report 8357855-8 (Version None)
Quarter: 2012Q2

REPORT INFORMATION
  Report Type: 
  Country: None (occurrence: None)
  Receive Date: 20120514
  Receipt Date: 20120507
  Transmission Date: 20120825
  Serious: Yes (Other)
  Sender: FDA-Public Use
  Company Number: US-ABBOTT-12P-163-0933393-00

PATIENT
  Sex: Female

DRUGS (7)
  1. VIT B12 COMPLEX [Concomitant]
     Indication: PRODUCT USED FOR UNKNOWN INDICATION
  2. POTASSIUM CHLORIDE [Concomitant]
     Indication: BARTTER'S SYNDROME
  3. CALCIUM +D [Concomitant]
     Indication: PRODUCT USED FOR UNKNOWN INDICATION
  4. VIT E [Concomitant]
     Indication: PRODUCT USED FOR UNKNOWN INDICATION
  5. HUMIRA [Suspect]
     Indication: RHEUMATOID ARTHRITIS
     Dates: start: 20110401
  6. ZAROXOLYN [Concomitant]
     Indication: DIURETIC THERAPY
  7. ALDACTONE [Concomitant]
     Indication: DIURETIC THERAPY

REACTIONS (4)
  - GALLBLADDER OBSTRUCTION [None]
  - GALLBLADDER ABSCESS [None]
  - ABDOMINAL PAIN UPPER [None]
  - MUSCULOSKELETAL STIFFNESS [None]
